FAERS Safety Report 7705911-7 (Version None)
Quarter: 2011Q3

REPORT INFORMATION
  Report Type: 
  Country: None (occurrence: None)
  Receive Date: 20110818
  Receipt Date: 20110804
  Transmission Date: 20111222
  Serious: Yes (Other)
  Sender: FDA-Public Use
  Company Number: 2009EN000030

PATIENT
  Age: 11 Month
  Sex: Female

DRUGS (2)
  1. ADAGEN [Suspect]
     Indication: COMBINED IMMUNODEFICIENCY
     Dosage: QW; IM
     Route: 030
     Dates: start: 20051010, end: 20060508
  2. ADAGEN [Suspect]
     Indication: COMBINED IMMUNODEFICIENCY
     Dosage: QW; IM
     Route: 030
     Dates: start: 20060526, end: 20061030

REACTIONS (12)
  - GENITAL DISORDER MALE [None]
  - HYPOACUSIS [None]
  - MENTAL RETARDATION [None]
  - DEAFNESS NEUROSENSORY [None]
  - HYPOTHYROIDISM [None]
  - ADRENAL INSUFFICIENCY [None]
  - DEVELOPMENTAL DELAY [None]
  - RESPIRATORY TRACT INFECTION [None]
  - DEVICE RELATED INFECTION [None]
  - GONADAL DYSGENESIS [None]
  - PSYCHOMOTOR SKILLS IMPAIRED [None]
  - FAILURE TO THRIVE [None]
